FAERS Safety Report 13160730 (Version 2)
Quarter: 2017Q1

REPORT INFORMATION
  Report Type: Report from Study
  Country: None (occurrence: PR)
  Receive Date: 20170129
  Receipt Date: 20170201
  Transmission Date: 20170428
  Serious: Yes (Other)
  Sender: FDA-Public Use
  Company Number: PR-ABBVIE-17K-131-1849141-00

PATIENT
  Sex: Female

DRUGS (9)
  1. LIPO-FLAVONOID [Concomitant]
     Indication: EYE DISORDER
     Route: 048
     Dates: start: 2013
  2. MOBIC [Concomitant]
     Active Substance: MELOXICAM
     Indication: PAIN
  3. HUMIRA [Suspect]
     Active Substance: ADALIMUMAB
     Indication: PSORIATIC ARTHROPATHY
     Route: 058
     Dates: start: 2011, end: 201612
  4. HUMIRA [Suspect]
     Active Substance: ADALIMUMAB
     Route: 058
  5. LEVAQUIN [Concomitant]
     Active Substance: LEVOFLOXACIN
     Indication: URINARY TRACT INFECTION
     Route: 048
  6. AVAPRO [Concomitant]
     Active Substance: IRBESARTAN
     Indication: HYPERTENSION
     Route: 048
  7. NORVASC [Concomitant]
     Active Substance: AMLODIPINE BESYLATE
     Indication: HYPERTENSION
     Route: 048
  8. MACROBID [Concomitant]
     Active Substance: NITROFURANTOIN\NITROFURANTOIN MONOHYDRATE
     Indication: URINARY TRACT INFECTION
     Route: 048
  9. URIN [Concomitant]
     Indication: INFECTION PROPHYLAXIS
     Route: 048

REACTIONS (1)
  - Cataract [Recovering/Resolving]
